FAERS Safety Report 22974747 (Version 5)
Quarter: 2024Q1

REPORT INFORMATION
  Report Type: Spontaneous
  Country: PL (occurrence: PL)
  Receive Date: 20230923
  Receipt Date: 20240213
  Transmission Date: 20240409
  Serious: Yes (Death, Hospitalization, Other)
  Sender: FDA-Public Use
  Company Number: PL-USP-ICSR-2023-02-04-102_40

PATIENT
  Age: 64 Year
  Sex: Female

DRUGS (17)
  1. METOPROLOL [Suspect]
     Active Substance: METOPROLOL
     Indication: Atrial fibrillation
     Dosage: 50 MG, QD
     Route: 065
  2. PROPAFENONE [Suspect]
     Active Substance: PROPAFENONE
     Indication: Product used for unknown indication
     Dosage: 150.000MG QOD
     Route: 065
  3. PROPAFENONE [Suspect]
     Active Substance: PROPAFENONE
     Indication: Atrial fibrillation
     Dosage: 150 MG, BID
     Route: 065
  4. RYTHMOL [Suspect]
     Active Substance: PROPAFENONE HYDROCHLORIDE
     Indication: Atrial fibrillation
     Dosage: 150 MG, BID (QOD)
     Route: 065
  5. RYTHMOL [Suspect]
     Active Substance: PROPAFENONE HYDROCHLORIDE
     Dosage: 150 MG, QD
     Route: 065
  6. METOPROLOL [Concomitant]
     Active Substance: METOPROLOL
     Indication: Product used for unknown indication
     Dosage: 50 MG, QD
     Route: 065
  7. RECALCIN [Concomitant]
     Indication: Product used for unknown indication
     Route: 065
  8. DIPHENHYDRAMINE [Interacting]
     Active Substance: DIPHENHYDRAMINE
     Dosage: DURING THE NIGHT IN COMBINATION WITH PARACETAMOL./1 DOSAGE FORM, QD, AT NIGHT/UNK UNK, PRN
     Route: 065
  9. DIPHENHYDRAMINE [Interacting]
     Active Substance: DIPHENHYDRAMINE
     Indication: Arthralgia
     Dosage: 1 DOSAGE FORM, QD, AT NIGHT
     Route: 065
  10. DIPHENHYDRAMINE [Interacting]
     Active Substance: DIPHENHYDRAMINE
     Dosage: UNK UNK, PRN
     Route: 065
  11. OMEPRAZOLE [Interacting]
     Active Substance: OMEPRAZOLE
     Indication: Abdominal pain upper
     Dosage: 40 MG, QD
     Route: 065
  12. OMEPRAZOLE [Interacting]
     Active Substance: OMEPRAZOLE
     Indication: Abdominal pain upper
     Dosage: 40 MG, QD (24 HOUR)
     Route: 065
  13. ACETAMINOPHEN [Interacting]
     Active Substance: ACETAMINOPHEN
     Indication: Arthralgia
     Dosage: 1000 MG, QOD
     Route: 065
  14. ACETAMINOPHEN [Interacting]
     Active Substance: ACETAMINOPHEN
     Dosage: 1000 MG, BID (2 ?/24 H DURING THE DAY)
     Route: 065
  15. ACETAMINOPHEN [Interacting]
     Active Substance: ACETAMINOPHEN
     Dosage: 1000 MILLIGRAM, BID
     Route: 065
  16. WARFARIN SODIUM [Interacting]
     Active Substance: WARFARIN SODIUM
     Indication: Atrial fibrillation
     Dosage: UNK
     Route: 065
  17. WARFARIN SODIUM [Interacting]
     Active Substance: WARFARIN SODIUM
     Dosage: UNK (VARIABLE DOSES)
     Route: 065

REACTIONS (10)
  - Subarachnoid haemorrhage [Fatal]
  - Drug interaction [Fatal]
  - Coagulation time prolonged [Fatal]
  - Abdominal pain upper [Fatal]
  - Medication error [Fatal]
  - Abdominal pain [Not Recovered/Not Resolved]
  - Loss of consciousness [Unknown]
  - Anticoagulation drug level increased [Unknown]
  - International normalised ratio abnormal [Unknown]
  - Drug ineffective [Not Recovered/Not Resolved]
